FAERS Safety Report 21097925 (Version 1)
Quarter: 2022Q3

REPORT INFORMATION
  Report Type: Report from Study
  Country: IT (occurrence: IT)
  Receive Date: 20220719
  Receipt Date: 20220719
  Transmission Date: 20221027
  Serious: Yes (Other)
  Sender: FDA-Public Use
  Company Number: None

PATIENT
  Age: 83 Year
  Sex: Male

DRUGS (5)
  1. AMLODIPINE [Suspect]
     Active Substance: AMLODIPINE BESYLATE
     Indication: Hypertension
  2. Dobetin [Concomitant]
     Dosage: STRENGTH: 20 MICROGRAMS / ML
  3. CALCIFEDIOL [Concomitant]
     Active Substance: CALCIFEDIOL
     Dosage: STRENGTH: 0.266 MG
  4. RAMIPRIL [Concomitant]
     Active Substance: RAMIPRIL
     Indication: Hypertension
  5. SOTALOL [Concomitant]
     Active Substance: SOTALOL

REACTIONS (2)
  - Oedema peripheral [Unknown]
  - Gravitational oedema [Unknown]

NARRATIVE: CASE EVENT DATE: 20220323
